FAERS Safety Report 25067793 (Version 1)
Quarter: 2025Q1

REPORT INFORMATION
  Report Type: Report from Study
  Country: US (occurrence: US)
  Receive Date: 20250312
  Receipt Date: 20250312
  Transmission Date: 20250409
  Serious: Yes (Other)
  Sender: EMD SERONO INC
  Company Number: US-Merck Healthcare KGaA-2025011633

PATIENT
  Age: 70 Year
  Sex: Female

DRUGS (2)
  1. REBIF [Suspect]
     Active Substance: INTERFERON BETA-1A
     Indication: Multiple sclerosis
     Dates: start: 200309
  2. BACLOFEN [Suspect]
     Active Substance: BACLOFEN
     Indication: Multiple sclerosis

REACTIONS (2)
  - Renal failure [Unknown]
  - Ill-defined disorder [Unknown]
